FAERS Safety Report 21413407 (Version 1)
Quarter: 2022Q4

REPORT INFORMATION
  Report Type: Report from Study
  Country: US (occurrence: US)
  Receive Date: 20221006
  Receipt Date: 20221006
  Transmission Date: 20230112
  Serious: No
  Sender: FDA-Public Use
  Company Number: US-ABBVIE-4134746

PATIENT
  Age: 55 Year
  Sex: Female

DRUGS (3)
  1. HUMIRA [Suspect]
     Active Substance: ADALIMUMAB
     Indication: Rheumatoid arthritis
     Route: 058
  2. MODERNA COVID-19 VACCINE [Suspect]
     Active Substance: ELASOMERAN
     Indication: COVID-19 immunisation
     Dosage: DOSE 2. ONE IN ONCE.
     Route: 030
     Dates: start: 20211001, end: 20211001
  3. MODERNA COVID-19 VACCINE [Suspect]
     Active Substance: ELASOMERAN
     Indication: COVID-19 immunisation
     Dosage: 1ST DOSE. ONE IN ONCE.
     Route: 030
     Dates: start: 20210903, end: 20210903

REACTIONS (7)
  - Stress [Not Recovered/Not Resolved]
  - Musculoskeletal stiffness [Recovering/Resolving]
  - Nodule [Recovered/Resolved]
  - Injected limb mobility decreased [Recovering/Resolving]
  - Weight decreased [Unknown]
  - Insomnia [Unknown]
  - Tenderness [Unknown]

NARRATIVE: CASE EVENT DATE: 20211001
